APPROVED DRUG PRODUCT: BALZIVA-21
Active Ingredient: ETHINYL ESTRADIOL; NORETHINDRONE
Strength: 0.035MG;0.4MG
Dosage Form/Route: TABLET;ORAL-21
Application: A076198 | Product #001
Applicant: BARR LABORATORIES INC
Approved: Apr 22, 2004 | RLD: No | RS: No | Type: DISCN